FAERS Safety Report 15936709 (Version 1)
Quarter: 2019Q1

REPORT INFORMATION
  Report Type: Spontaneous
  Country: FR (occurrence: FR)
  Receive Date: 20190208
  Receipt Date: 20190208
  Transmission Date: 20190417
  Serious: Yes (Life-Threatening, Other)
  Sender: FDA-Public Use
  Company Number: FR-ACCORD-105705

PATIENT
  Age: 60 Year
  Sex: Male

DRUGS (8)
  1. ETOPOSIDE/ETOPOSIDE PHOSPHATE [Concomitant]
     Indication: DIFFUSE LARGE B-CELL LYMPHOMA RECURRENT
     Dates: start: 201705
  2. CYTARABINE/CYTARABINE HYDROCHLORIDE/CYTARABINE OCFOSFATE [Concomitant]
     Indication: DIFFUSE LARGE B-CELL LYMPHOMA RECURRENT
     Dosage: HIGH-DOSE
     Dates: start: 201705
  3. RITUXIMAB. [Concomitant]
     Active Substance: RITUXIMAB
     Indication: DIFFUSE LARGE B-CELL LYMPHOMA RECURRENT
     Dates: start: 201705
  4. DEXAMETHASONE. [Concomitant]
     Active Substance: DEXAMETHASONE
     Indication: DIFFUSE LARGE B-CELL LYMPHOMA RECURRENT
     Dates: start: 201705
  5. CARMUSTINE. [Concomitant]
     Active Substance: CARMUSTINE
     Indication: DIFFUSE LARGE B-CELL LYMPHOMA RECURRENT
     Dates: start: 201705
  6. IBRUTINIB [Concomitant]
     Active Substance: IBRUTINIB
     Indication: DIFFUSE LARGE B-CELL LYMPHOMA RECURRENT
     Dates: start: 201705
  7. OXALIPLATIN. [Suspect]
     Active Substance: OXALIPLATIN
     Indication: DIFFUSE LARGE B-CELL LYMPHOMA RECURRENT
     Dates: start: 201705
  8. MELPHALAN. [Concomitant]
     Active Substance: MELPHALAN
     Indication: DIFFUSE LARGE B-CELL LYMPHOMA RECURRENT
     Dates: start: 20170501

REACTIONS (3)
  - Off label use [Unknown]
  - Venoocclusive disease [Recovering/Resolving]
  - Hepatic encephalopathy [Unknown]
